FAERS Safety Report 25146782 (Version 2)
Quarter: 2025Q2

REPORT INFORMATION
  Report Type: Spontaneous
  Country: US (occurrence: US)
  Receive Date: 20250401
  Receipt Date: 20250407
  Transmission Date: 20250717
  Serious: No
  Sender: PFIZER
  Company Number: US-PFIZER INC-202500068417

PATIENT
  Age: 68 Year
  Sex: Female

DRUGS (8)
  1. IBRANCE [Suspect]
     Active Substance: PALBOCICLIB
     Indication: Breast cancer female
     Route: 048
     Dates: start: 20250110
  2. ASPIRIN [Concomitant]
     Active Substance: ASPIRIN
  3. CALCIUM [Concomitant]
     Active Substance: CALCIUM
  4. MINERALS\VITAMINS [Concomitant]
     Active Substance: MINERALS\VITAMINS
  5. FERROUS SULFATE [Concomitant]
     Active Substance: FERROUS SULFATE
  6. NAPROXEN [Concomitant]
     Active Substance: NAPROXEN
  7. VITAMIN D3 [Concomitant]
     Active Substance: CHOLECALCIFEROL
  8. ZOLEDRONIC [Concomitant]
     Active Substance: ZOLEDRONIC ACID

REACTIONS (2)
  - Peripheral swelling [Not Recovered/Not Resolved]
  - Hypercalcaemia [Unknown]
